FAERS Safety Report 8345789-4 (Version None)
Quarter: 2012Q2

REPORT INFORMATION
  Report Type: 
  Country: None (occurrence: None)
  Receive Date: 20120508
  Receipt Date: 20120427
  Transmission Date: 20120825
  Serious: Yes (Other)
  Sender: FDA-Public Use
  Company Number: US-BRISTOL-MYERS SQUIBB COMPANY-16556342

PATIENT
  Age: 51 Year
  Sex: Female
  Weight: 73 kg

DRUGS (4)
  1. ABILIFY [Suspect]
     Indication: SCHIZOPHRENIA
  2. LAMICTAL [Concomitant]
  3. ABILIFY [Suspect]
     Indication: DEPRESSION
  4. LEXAPRO [Concomitant]

REACTIONS (3)
  - DEMENTIA [None]
  - TREMOR [None]
  - CONVULSION [None]
